FAERS Safety Report 5701433-3 (Version None)
Quarter: 2008Q2

REPORT INFORMATION
  Report Type: 
  Country: None (occurrence: None)
  Receive Date: 20080407
  Receipt Date: 20080403
  Transmission Date: 20081010
  Serious: Yes (Death, Hospitalization)
  Sender: FDA-Public Use
  Company Number: 2007SP023730

PATIENT
  Age: 33 Year
  Sex: Male
  Weight: 60 kg

DRUGS (6)
  1. TEMODAL [Suspect]
     Indication: GLIOBLASTOMA MULTIFORME
     Dosage: 220 MG/M2; QD; PO, 340 MG/M2; QD; PO, 340 MG/M2; QD; PO, 340 MG/M2; QD; PO
     Route: 048
     Dates: start: 20070120, end: 20070124
  2. TEMODAL [Suspect]
     Indication: GLIOBLASTOMA MULTIFORME
     Dosage: 220 MG/M2; QD; PO, 340 MG/M2; QD; PO, 340 MG/M2; QD; PO, 340 MG/M2; QD; PO
     Route: 048
     Dates: start: 20070217, end: 20070221
  3. TEMODAL [Suspect]
     Indication: GLIOBLASTOMA MULTIFORME
     Dosage: 220 MG/M2; QD; PO, 340 MG/M2; QD; PO, 340 MG/M2; QD; PO, 340 MG/M2; QD; PO
     Route: 048
     Dates: start: 20070425, end: 20070429
  4. TEMODAL [Suspect]
     Indication: GLIOBLASTOMA MULTIFORME
     Dosage: 220 MG/M2; QD; PO, 340 MG/M2; QD; PO, 340 MG/M2; QD; PO, 340 MG/M2; QD; PO
     Route: 048
     Dates: start: 20070626, end: 20070630
  5. BAKTAR [Concomitant]
  6. ZOFRAN ZYDIS [Concomitant]

REACTIONS (6)
  - DISEASE PROGRESSION [None]
  - GASTRIC CANCER [None]
  - GLIOBLASTOMA MULTIFORME [None]
  - HEPATIC FUNCTION ABNORMAL [None]
  - NEUTROPHIL COUNT DECREASED [None]
  - PLATELET COUNT DECREASED [None]
